FAERS Safety Report 4311721-3 (Version None)
Quarter: 2004Q1

REPORT INFORMATION
  Report Type: 
  Country: None (occurrence: None)
  Receive Date: 20040304
  Receipt Date: 20040304
  Transmission Date: 20041129
  Serious: Yes (Death)
  Sender: FDA-Public Use
  Company Number: None

PATIENT
  Age: 56 Year
  Sex: Female
  Weight: 82.4 kg

DRUGS (7)
  1. RITUXAN [Suspect]
     Indication: WALDENSTROM'S MACROGLOBULINAEMIA
     Dosage: 375 MG/M2 670 MG IV
     Route: 042
     Dates: start: 20040213
  2. ATENOLOL [Concomitant]
  3. PREVACID [Concomitant]
  4. ALAVERT [Concomitant]
  5. CALCIUM [Concomitant]
  6. M.V.I. [Concomitant]
  7. EPOGEN [Concomitant]

REACTIONS (4)
  - CARDIAC ARREST [None]
  - DIZZINESS [None]
  - FEELING COLD [None]
  - SENSATION OF HEAVINESS [None]
